FAERS Safety Report 5861699-6 (Version None)
Quarter: 2008Q3

REPORT INFORMATION
  Report Type: 
  Country: None (occurrence: None)
  Receive Date: 20080826
  Receipt Date: 20080814
  Transmission Date: 20090109
  Serious: Yes (Other)
  Sender: FDA-Public Use
  Company Number: DAV-AE-PTU-08-003

PATIENT
  Age: 31 Year
  Sex: Female

DRUGS (1)
  1. PROPYLTHIORACIL [Suspect]
     Indication: HYPERTHYROIDISM

REACTIONS (1)
  - ACUTE MYELOID LEUKAEMIA [None]
